FAERS Safety Report 8235871-4 (Version None)
Quarter: 2012Q1

REPORT INFORMATION
  Report Type: 
  Country: None (occurrence: None)
  Receive Date: 20120326
  Receipt Date: 20120324
  Transmission Date: 20120608
  Serious: Yes (Other)
  Sender: FDA-Public Use
  Company Number: US-PFIZER INC-2012076258

PATIENT
  Sex: Female
  Weight: 109 kg

DRUGS (4)
  1. GILENYA [Concomitant]
     Indication: MULTIPLE SCLEROSIS
     Dosage: UNK
     Route: 048
  2. EFFEXOR [Concomitant]
     Dosage: 250 MG, DAILY
     Route: 048
  3. GEODON [Suspect]
     Indication: SCHIZOPHRENIA
     Dosage: 80 MG, 2X/DAY
     Route: 048
     Dates: start: 20110401
  4. DEPAKOTE [Concomitant]
     Dosage: 750 MG, 2X/DAY
     Route: 048

REACTIONS (3)
  - DEJA VU [None]
  - HALLUCINATION [None]
  - WEIGHT INCREASED [None]
